FAERS Safety Report 7119507-1 (Version None)
Quarter: 2010Q4

REPORT INFORMATION
  Report Type: 
  Country: None (occurrence: None)
  Receive Date: 20101123
  Receipt Date: 20101112
  Transmission Date: 20110411
  Serious: Yes (Hospitalization)
  Sender: FDA-Public Use
  Company Number: GR-TEVA-255590ISR

PATIENT
  Age: 60 Year
  Sex: Male

DRUGS (1)
  1. COPAXONE [Suspect]

REACTIONS (1)
  - HEMIPLEGIA [None]
